FAERS Safety Report 21191891 (Version 2)
Quarter: 2022Q3

REPORT INFORMATION
  Report Type: Spontaneous
  Country: DE (occurrence: DE)
  Receive Date: 20220809
  Receipt Date: 20220815
  Transmission Date: 20221026
  Serious: Yes (Life-Threatening, Hospitalization, Other)
  Sender: FDA-Public Use
  Company Number: DE-PFIZER INC-049-0073-990004

PATIENT
  Age: 70 Year
  Sex: Male
  Weight: 90 kg

DRUGS (83)
  1. PHENYTOIN SODIUM [Suspect]
     Active Substance: PHENYTOIN SODIUM
     Indication: Seizure prophylaxis
     Dosage: 500 MG, (4 SEPARATED DOSES)
     Route: 042
     Dates: start: 19940919, end: 19940921
  2. PHENYTOIN SODIUM [Suspect]
     Active Substance: PHENYTOIN SODIUM
     Dosage: UNK
     Route: 065
  3. CODEINE [Suspect]
     Active Substance: CODEINE
     Indication: Cough
     Dosage: UNK, DAILY
     Route: 048
     Dates: start: 19940912, end: 19940913
  4. CODEINE [Suspect]
     Active Substance: CODEINE
     Dosage: UNK
     Route: 048
     Dates: start: 19941004, end: 19941006
  5. HEPARIN SODIUM [Suspect]
     Active Substance: HEPARIN SODIUM
     Dosage: 15000 IU, 3 SEPARATED DOSES
     Route: 058
     Dates: start: 19940922, end: 19940926
  6. DEXAMETHASONE [Suspect]
     Active Substance: DEXAMETHASONE
     Indication: Brain oedema
     Dosage: UNK
     Route: 042
     Dates: start: 19940919, end: 19940924
  7. DEXAMETHASONE [Suspect]
     Active Substance: DEXAMETHASONE
     Indication: Prophylaxis
  8. PHENYTOIN [Suspect]
     Active Substance: PHENYTOIN
     Indication: Seizure prophylaxis
     Dosage: 3 DF, 3 SEPARATED DOSES
     Route: 048
     Dates: start: 19940910, end: 19940919
  9. PHENYTOIN [Suspect]
     Active Substance: PHENYTOIN
     Dosage: UNK, 3X/DAY
     Dates: start: 19940830
  10. SUCRALFATE [Suspect]
     Active Substance: SUCRALFATE
     Indication: Prophylaxis
     Dosage: UNK, 3X/DAY
     Route: 048
     Dates: start: 19940926, end: 19941004
  11. CEFOTIAM HYDROCHLORIDE [Suspect]
     Active Substance: CEFOTIAM HYDROCHLORIDE
     Indication: Infection
     Dosage: 4 G, 2 SEPARATED DOSES
     Route: 042
     Dates: start: 19940923, end: 19940926
  12. CEFOTIAM HYDROCHLORIDE [Suspect]
     Active Substance: CEFOTIAM HYDROCHLORIDE
     Dosage: 4 G, 2X/DAY
     Route: 042
     Dates: start: 19940919, end: 19940919
  13. CEFUROXIME AXETIL [Suspect]
     Active Substance: CEFUROXIME AXETIL
     Indication: Infection
     Dosage: 1000 MG, 2 SEPARATED DOSES
     Route: 048
     Dates: start: 19940926, end: 19941006
  14. ASCORBIC ACID\FERROUS SULFATE\SODIUM BICARBONATE [Suspect]
     Active Substance: ASCORBIC ACID\FERROUS SULFATE\SODIUM BICARBONATE
     Indication: Mineral supplementation
     Dosage: UNK
     Route: 048
     Dates: start: 19941005, end: 19941006
  15. ASCORBIC ACID\FERROUS SULFATE\SODIUM BICARBONATE [Suspect]
     Active Substance: ASCORBIC ACID\FERROUS SULFATE\SODIUM BICARBONATE
     Indication: Nutritional supplementation
  16. SULFAMETHOXAZOLE\TRIMETHOPRIM [Suspect]
     Active Substance: SULFAMETHOXAZOLE\TRIMETHOPRIM
     Indication: Infection
     Dosage: 2 DF, 2X/DAY
     Route: 048
     Dates: start: 19940913, end: 19940918
  17. CLORAZEPATE DIPOTASSIUM [Suspect]
     Active Substance: CLORAZEPATE DIPOTASSIUM
     Indication: Premedication
     Dosage: UNK
     Route: 048
     Dates: start: 19940913, end: 19940913
  18. CLORAZEPATE DIPOTASSIUM [Suspect]
     Active Substance: CLORAZEPATE DIPOTASSIUM
     Dosage: UNK
     Route: 048
     Dates: start: 19940918, end: 19940918
  19. ACETYLCYSTEINE [Suspect]
     Active Substance: ACETYLCYSTEINE
     Indication: Cough
     Dosage: UNK UNK, 3X/DAY
     Route: 048
     Dates: start: 19940916, end: 19940919
  20. ACETYLCYSTEINE [Suspect]
     Active Substance: ACETYLCYSTEINE
     Dosage: UNK UNK, 3X/DAY
     Route: 048
     Dates: start: 19940926, end: 19941004
  21. ACETYLCYSTEINE [Suspect]
     Active Substance: ACETYLCYSTEINE
     Dosage: UNK UNK, 2X/DAY
     Route: 048
     Dates: start: 19940921, end: 19940926
  22. ASPIRIN\CAFFEINE\CARBROMAL\PHENACETIN [Suspect]
     Active Substance: ASPIRIN\CAFFEINE\CARBROMAL\PHENACETIN
     Indication: Pain
     Dosage: UNK
     Route: 065
     Dates: start: 19940917, end: 19940917
  23. LASIX [Suspect]
     Active Substance: FUROSEMIDE
     Indication: Oedema
     Dosage: UNK
     Route: 042
     Dates: start: 19940919, end: 19940920
  24. VALIUM [Suspect]
     Active Substance: DIAZEPAM
     Indication: Seizure
     Dosage: UNK
     Route: 065
     Dates: start: 19940922, end: 19940922
  25. RIVOTRIL [Suspect]
     Active Substance: CLONAZEPAM
     Indication: Seizure
     Dosage: UNK
     Route: 065
     Dates: start: 19940922, end: 19940922
  26. PERIAMIN X [Suspect]
     Active Substance: AMINO ACIDS\ELECTROLYTES NOS\XYLITOL
     Indication: Nutritional supplementation
     Dosage: UNK
     Route: 042
     Dates: start: 19940922, end: 19940924
  27. DIAZEPAM [Suspect]
     Active Substance: DIAZEPAM
     Indication: Seizure
     Dosage: UNK
     Route: 042
     Dates: start: 19940924, end: 19940924
  28. DIAZEPAM [Suspect]
     Active Substance: DIAZEPAM
     Indication: Seizure
     Dosage: UNK
     Route: 042
     Dates: start: 19940922, end: 19940922
  29. DIAZEPAM [Suspect]
     Active Substance: DIAZEPAM
     Dosage: 5 MG
     Route: 042
     Dates: start: 19940923, end: 19940923
  30. HETASTARCH [Suspect]
     Active Substance: HETASTARCH
     Indication: Ill-defined disorder
     Dosage: UNK
     Route: 042
     Dates: start: 19940923, end: 19940926
  31. CARBAMAZEPINE [Suspect]
     Active Substance: CARBAMAZEPINE
     Indication: Seizure prophylaxis
     Dosage: QID, 200 MG
     Route: 048
     Dates: start: 19940920, end: 19941008
  32. CARBAMAZEPINE [Suspect]
     Active Substance: CARBAMAZEPINE
     Dosage: UNK, 4X/DAY
     Route: 048
     Dates: start: 19940920
  33. ACETYLCYSTEINE [Suspect]
     Active Substance: ACETYLCYSTEINE
     Indication: Cough
     Dosage: 3 DF, 3 SEPARATED DOSES
     Route: 048
     Dates: start: 19940916, end: 19940919
  34. ACETYLCYSTEINE [Suspect]
     Active Substance: ACETYLCYSTEINE
     Dosage: UNK, 2 SEPARETED DOSES
     Dates: start: 19940921, end: 19940926
  35. ACETYLCYSTEINE [Suspect]
     Active Substance: ACETYLCYSTEINE
     Dosage: UNK, 3 SEPARATED DOSES
     Route: 048
     Dates: start: 19940926, end: 19941004
  36. CLONAZEPAM [Suspect]
     Active Substance: CLONAZEPAM
     Indication: Seizure
     Dosage: 1 MG
     Route: 042
     Dates: start: 19940922, end: 19940922
  37. FLAVOXATE HYDROCHLORIDE [Concomitant]
     Active Substance: FLAVOXATE HYDROCHLORIDE
     Indication: Bladder disorder
     Dosage: 600 MG, 3 SEPARATED DOSES
     Route: 065
     Dates: start: 19940914, end: 19940918
  38. ADALAT [Concomitant]
     Active Substance: NIFEDIPINE
     Indication: Hypertonia
     Dosage: 2 DF, 2 SEPARATED DOSES
     Route: 048
     Dates: start: 19940910, end: 19941008
  39. ADALAT [Concomitant]
     Active Substance: NIFEDIPINE
     Dosage: INTERMITTENT DOSING
     Route: 060
     Dates: end: 19940925
  40. ADALAT [Concomitant]
     Active Substance: NIFEDIPINE
     Dosage: UNK
     Dates: start: 19940910, end: 19940912
  41. ADALAT [Concomitant]
     Active Substance: NIFEDIPINE
     Dosage: UNK
     Dates: start: 19940915, end: 19940915
  42. ADALAT [Concomitant]
     Active Substance: NIFEDIPINE
     Dosage: UNK
     Dates: start: 19940920, end: 19940920
  43. ADALAT [Concomitant]
     Active Substance: NIFEDIPINE
     Dosage: UNK
     Dates: start: 19940922, end: 19940922
  44. ADALAT [Concomitant]
     Active Substance: NIFEDIPINE
     Dosage: UNK
     Dates: start: 19940925, end: 19940925
  45. ENALAPRIL MALEATE [Concomitant]
     Active Substance: ENALAPRIL MALEATE
     Dosage: UNK
     Route: 048
     Dates: start: 19940910, end: 19941008
  46. PIRETANIDE [Concomitant]
     Active Substance: PIRETANIDE
     Indication: Cardiac failure
     Dosage: UNK
     Route: 048
     Dates: start: 19940910, end: 19941008
  47. SUCRALFATE [Concomitant]
     Active Substance: SUCRALFATE
     Dosage: UNK
     Route: 048
     Dates: start: 19940910, end: 19940926
  48. THROMBOPHOB [HEPARIN SODIUM] [Concomitant]
     Indication: Thrombosis prophylaxis
     Dosage: UNK
     Route: 058
     Dates: start: 19940910, end: 19940922
  49. DEXAMETHASONE [Concomitant]
     Active Substance: DEXAMETHASONE
     Indication: Prophylaxis
     Dosage: UNK
     Route: 048
     Dates: start: 19940910, end: 19940919
  50. CLONIDINE [Concomitant]
     Active Substance: CLONIDINE
     Indication: Hypertonia
     Dosage: UNK
     Route: 065
     Dates: start: 19940910, end: 19940910
  51. CLONIDINE [Concomitant]
     Active Substance: CLONIDINE
     Dosage: UNK
     Route: 058
     Dates: start: 19940913, end: 19940913
  52. BENADRYL [Concomitant]
     Active Substance: DIPHENHYDRAMINE HYDROCHLORIDE
     Indication: Cough
     Dosage: UNK
     Route: 048
     Dates: start: 19941004, end: 19941006
  53. BENADRYL [Concomitant]
     Active Substance: DIPHENHYDRAMINE HYDROCHLORIDE
     Dosage: UNK
     Route: 048
     Dates: start: 19940910, end: 19940910
  54. BENADRYL [Concomitant]
     Active Substance: DIPHENHYDRAMINE HYDROCHLORIDE
     Dosage: UNK
     Route: 048
     Dates: start: 19940917, end: 19940917
  55. BENADRYL [Concomitant]
     Active Substance: DIPHENHYDRAMINE HYDROCHLORIDE
     Dosage: UNK
     Route: 048
     Dates: start: 19941004, end: 19941004
  56. BENADRYL [Concomitant]
     Active Substance: DIPHENHYDRAMINE HYDROCHLORIDE
     Dosage: INTERMITTENT DOSING
     Route: 048
     Dates: end: 19941006
  57. CLEMASTINE FUMARATE [Concomitant]
     Active Substance: CLEMASTINE FUMARATE
     Indication: Hypersensitivity
     Dosage: 2 DF, 2 SEPARATED DOSES
     Route: 048
     Dates: start: 19941008, end: 19941008
  58. TAGAMET [Concomitant]
     Active Substance: CIMETIDINE
     Indication: Hypersensitivity
     Dosage: 2 DF, 1X/DAY, 2 SEPARATED DOSES
     Route: 065
     Dates: start: 19941008, end: 19941008
  59. METHYLPREDNISOLONE [Concomitant]
     Active Substance: METHYLPREDNISOLONE
     Indication: Hypersensitivity
     Dosage: UNK
     Route: 065
     Dates: start: 19941008, end: 19941008
  60. DEXPANTHENOL [Concomitant]
     Active Substance: DEXPANTHENOL
     Indication: Oropharyngeal pain
     Dosage: UNK
     Route: 065
     Dates: start: 19940910, end: 19940910
  61. DEXPANTHENOL [Concomitant]
     Active Substance: DEXPANTHENOL
     Dosage: INTERMITTENT DOSING
     Route: 048
     Dates: start: 19940914, end: 19940914
  62. DICLOFENAC [Concomitant]
     Active Substance: DICLOFENAC
     Dosage: UNK, SLOW RELEASE
     Route: 048
     Dates: start: 19940913, end: 19940913
  63. PSYQUIL [TRIFLUPROMAZINE] [Concomitant]
     Dosage: UNK
     Route: 065
     Dates: start: 19940919, end: 19940919
  64. THIOPENTAL SODIUM [Concomitant]
     Active Substance: THIOPENTAL SODIUM
     Indication: Induction of anaesthesia
     Dosage: UNK
     Dates: start: 19940919, end: 19940919
  65. DROPERIDOL [Concomitant]
     Active Substance: DROPERIDOL
     Indication: Induction of anaesthesia
     Dosage: 7.5 MG, 3 SEPARATED DOSES
     Route: 042
     Dates: start: 19940919, end: 19940919
  66. SUCCINYLCHOLINE CHLORIDE [Concomitant]
     Active Substance: SUCCINYLCHOLINE CHLORIDE
     Indication: Induction of anaesthesia
     Dosage: UNK
     Route: 042
     Dates: start: 19940919, end: 19940919
  67. FENTANYL [Concomitant]
     Active Substance: FENTANYL
     Indication: Induction of anaesthesia
     Dosage: UNK (JANSSEN), 0.1 (UNIT UNSPECIFIED), 5 SEPARATED DOSES
     Route: 042
     Dates: start: 19940919, end: 19940919
  68. NITROUS OXIDE [Concomitant]
     Active Substance: NITROUS OXIDE
     Dosage: UNK
     Route: 065
     Dates: start: 19940919, end: 19940919
  69. HALOTHANE [Concomitant]
     Active Substance: HALOTHANE
     Indication: Induction of anaesthesia
     Dosage: UNK
     Route: 055
     Dates: start: 19940919, end: 19940919
  70. ISOFLURANE [Concomitant]
     Active Substance: ISOFLURANE
     Dosage: UNK
     Route: 065
     Dates: start: 19940919, end: 19940919
  71. TRACRIUM [Concomitant]
     Active Substance: ATRACURIUM BESYLATE
     Indication: Induction of anaesthesia
     Dosage: UNK
     Route: 042
     Dates: start: 19940919, end: 19940919
  72. ATROPINE SULFATE [Concomitant]
     Active Substance: ATROPINE SULFATE
     Indication: Induction of anaesthesia
     Dosage: UNK
     Route: 042
     Dates: start: 19940919, end: 19940919
  73. URAPIDIL [Concomitant]
     Active Substance: URAPIDIL
     Dosage: 500 MG, 4 SEPARATED DOSES
     Route: 042
     Dates: start: 19940919, end: 19940919
  74. OSMOFUNDIN [MANNITOL;SODIUM ACETATE TRIHYDRATE;SODIUM CHLORIDE] [Concomitant]
     Indication: Prophylaxis
     Dosage: UNK
     Route: 042
     Dates: start: 19940919, end: 19940919
  75. CAFEDRINE HYDROCHLORIDE\THEODRENALINE [Concomitant]
     Active Substance: CAFEDRINE HYDROCHLORIDE\THEODRENALINE
     Indication: Hypotension
     Dosage: UNK
     Route: 042
     Dates: start: 19940919, end: 19940919
  76. POTASSIUM CHLORIDE [Concomitant]
     Active Substance: POTASSIUM CHLORIDE
     Dosage: UNK
     Route: 065
     Dates: start: 19940919, end: 19940920
  77. DOBUTREX [Concomitant]
     Active Substance: DOBUTAMINE HYDROCHLORIDE
     Indication: Cardiac disorder
     Dosage: UNK
     Route: 042
     Dates: start: 19940919, end: 19940920
  78. ACETYLCYSTEINE [Concomitant]
     Active Substance: ACETYLCYSTEINE
     Dosage: UNK
     Route: 065
     Dates: start: 19940919, end: 19940921
  79. ISOPROMETHAZINE HYDROCHLORIDE [Concomitant]
     Active Substance: ISOPROMETHAZINE HYDROCHLORIDE
     Indication: Restlessness
     Dosage: UNK
     Dates: start: 19940920, end: 19940920
  80. TUTOFUSIN OP S [Concomitant]
     Indication: Electrolyte substitution therapy
     Dosage: UNK
     Route: 042
     Dates: start: 19940920, end: 19940926
  81. POTASSIUM CHLORIDE [Concomitant]
     Active Substance: POTASSIUM CHLORIDE
     Indication: Electrolyte substitution therapy
     Dosage: UNK
     Route: 042
     Dates: start: 19940919, end: 19940920
  82. ISOFLURANE [Concomitant]
     Active Substance: ISOFLURANE
     Indication: Induction of anaesthesia
     Dosage: UNK
     Route: 055
     Dates: start: 19940919, end: 19940919
  83. NITROUS OXIDE [Concomitant]
     Active Substance: NITROUS OXIDE
     Indication: Induction of anaesthesia
     Dosage: UNK
     Route: 055
     Dates: start: 19940919, end: 19940919

REACTIONS (14)
  - SJS-TEN overlap [Recovered/Resolved]
  - Conjunctivitis [Recovered/Resolved]
  - Pneumonia [Recovered/Resolved]
  - Alanine aminotransferase increased [Unknown]
  - Blood lactate dehydrogenase increased [Unknown]
  - Gamma-glutamyltransferase increased [Unknown]
  - Leukocytosis [Unknown]
  - Pyrexia [Recovering/Resolving]
  - Mucosal erosion [Recovering/Resolving]
  - Lymphocytosis [Unknown]
  - Rash [Recovering/Resolving]
  - Blood urea increased [Unknown]
  - Aspartate aminotransferase increased [Unknown]
  - Blister [Recovering/Resolving]

NARRATIVE: CASE EVENT DATE: 19941006
